FAERS Safety Report 10179462 (Version 6)
Quarter: 2015Q3

REPORT INFORMATION
  Report Type: Report from Study
  Country: GB (occurrence: GB)
  Receive Date: 20140519
  Receipt Date: 20150727
  Transmission Date: 20151125
  Serious: Yes (Hospitalization, Other)
  Sender: FDA-Public Use
  Company Number: GB-009507513-1404GBR014489

PATIENT
  Age: 67 Year
  Sex: Male
  Weight: 96 kg

DRUGS (14)
  1. OMEPRAZOLE. [Concomitant]
     Active Substance: OMEPRAZOLE
     Indication: ANTACID THERAPY
     Dosage: 20 MG, QD
     Route: 048
     Dates: start: 201401, end: 20150305
  2. VORINOSTAT [Suspect]
     Active Substance: VORINOSTAT
     Dosage: 300 MG, BID
     Route: 048
     Dates: end: 20140512
  3. PREGABALIN. [Concomitant]
     Active Substance: PREGABALIN
     Indication: NEURALGIA
     Dosage: 100 MG, TID
     Route: 048
     Dates: start: 20140201, end: 20150306
  4. AZACITIDINE. [Suspect]
     Active Substance: AZACITIDINE
     Indication: MYELODYSPLASTIC SYNDROME
     Dosage: 160 MG/M2, QD
     Route: 058
     Dates: end: 20140415
  5. VORINOSTAT [Suspect]
     Active Substance: VORINOSTAT
     Indication: ACUTE MYELOID LEUKAEMIA
     Dosage: 300 MG, BID
     Route: 048
     Dates: start: 20140313, end: 20140317
  6. VORINOSTAT [Suspect]
     Active Substance: VORINOSTAT
     Dosage: 300 MG, BID, CYCLE 12
     Route: 048
     Dates: end: 20150306
  7. AZACITIDINE. [Suspect]
     Active Substance: AZACITIDINE
     Dosage: 160 MG/M2, QD
     Route: 058
     Dates: end: 20140512
  8. VITAMIN B COMPOUND STRONG [Concomitant]
     Indication: VITAMIN SUPPLEMENTATION
     Dosage: UNK, QD
     Route: 048
     Dates: end: 20150305
  9. AZACITIDINE. [Suspect]
     Active Substance: AZACITIDINE
     Dosage: 170 MG, QD
     Route: 058
     Dates: end: 20150603
  10. VORINOSTAT [Suspect]
     Active Substance: VORINOSTAT
     Indication: MYELODYSPLASTIC SYNDROME
     Dosage: 300 MG, BID
     Route: 048
     Dates: end: 20140415
  11. VORINOSTAT [Suspect]
     Active Substance: VORINOSTAT
     Dosage: 300 MG, BID
     Route: 048
     Dates: end: 20150603
  12. AZACITIDINE. [Suspect]
     Active Substance: AZACITIDINE
     Indication: ACUTE MYELOID LEUKAEMIA
     Dosage: 160 MG/M2, QD
     Route: 058
     Dates: start: 20140310, end: 20140314
  13. AZACITIDINE. [Suspect]
     Active Substance: AZACITIDINE
     Dosage: 165 MG, QD, CYCLE 12
     Route: 058
     Dates: end: 20150306
  14. OXYNORM [Concomitant]
     Active Substance: OXYCODONE HYDROCHLORIDE
     Indication: PAIN
     Dosage: UNK, QD
     Route: 048
     Dates: start: 201402, end: 20150305

REACTIONS (12)
  - Febrile neutropenia [Recovered/Resolved]
  - Embolism [Recovered/Resolved]
  - Escherichia bacteraemia [Recovered/Resolved]
  - Sepsis [Recovered/Resolved]
  - Febrile neutropenia [Recovered/Resolved]
  - Febrile neutropenia [Recovered/Resolved]
  - Bacterial infection [Recovered/Resolved]
  - Febrile neutropenia [Recovered/Resolved]
  - Febrile neutropenia [Recovered/Resolved]
  - Febrile neutropenia [Recovered/Resolved]
  - Sepsis [Recovered/Resolved]
  - Bacterial infection [Recovered/Resolved]

NARRATIVE: CASE EVENT DATE: 20140310
